FAERS Safety Report 6261312-2 (Version None)
Quarter: 2009Q3

REPORT INFORMATION
  Report Type: 
  Country: None (occurrence: None)
  Receive Date: 20090709
  Receipt Date: 20090420
  Transmission Date: 20100115
  Serious: No
  Sender: FDA-Public Use
  Company Number: US-KINGPHARMUSA00001-K200900467

PATIENT
  Sex: Female
  Weight: 47.619 kg

DRUGS (4)
  1. LEVOXYL [Suspect]
     Indication: HYPOTHYROIDISM
     Dosage: 37.5 MCG, QD
     Route: 048
  2. LEVOXYL [Suspect]
     Dosage: 50 MCG, QD
     Route: 048
  3. MULTIVITAMIN                       /00831701/ [Concomitant]
     Dosage: UNK
     Route: 048
  4. UNSPECIFIED SUPPLEMENT [Concomitant]

REACTIONS (5)
  - ABDOMINAL DISCOMFORT [None]
  - ALOPECIA [None]
  - ASTHENIA [None]
  - DRY MOUTH [None]
  - INCORRECT ROUTE OF DRUG ADMINISTRATION [None]
